FAERS Safety Report 16494080 (Version 4)
Quarter: 2021Q4

REPORT INFORMATION
  Report Type: Report from Study
  Country: US (occurrence: US)
  Receive Date: 20190628
  Receipt Date: 20211013
  Transmission Date: 20220303
  Serious: No
  Sender: FDA-Public Use
  Company Number: PHEH2019US026179

PATIENT
  Sex: Female

DRUGS (1)
  1. PROMACTA [Suspect]
     Active Substance: ELTROMBOPAG OLAMINE
     Indication: Product used for unknown indication
     Dosage: UNK UNK, QD
     Route: 048

REACTIONS (9)
  - Back injury [Unknown]
  - Fluid retention [Unknown]
  - Pain [Unknown]
  - Gastrointestinal pain [Unknown]
  - Bowel movement irregularity [Unknown]
  - Tremor [Unknown]
  - Malaise [Unknown]
  - Fatigue [Unknown]
  - Platelet count decreased [Unknown]
